FAERS Safety Report 17345346 (Version 3)
Quarter: 2021Q4

REPORT INFORMATION
  Report Type: Spontaneous
  Country: CH (occurrence: CH)
  Receive Date: 20200129
  Receipt Date: 20211117
  Transmission Date: 20220303
  Serious: Yes (Other)
  Sender: FDA-Public Use
  Company Number: CH-SM-2020-10346

PATIENT
  Age: 88 Year
  Sex: Male

DRUGS (10)
  1. TORSEMIDE [Interacting]
     Active Substance: TORSEMIDE
     Indication: Cardiac disorder
     Dosage: 5 MILLIGRAM, QD (START: 03-JAN-2020)
  2. CITALOPRAM [Suspect]
     Active Substance: CITALOPRAM HYDROBROMIDE
     Indication: Product used for unknown indication
     Dosage: 10 MILLIGRAM, QD
     Route: 048
  3. ZYTIGA [Interacting]
     Active Substance: ABIRATERONE ACETATE
     Indication: Product used for unknown indication
     Dosage: 1000 MILLIGRAM, QD
  4. LASIX [Interacting]
     Active Substance: FUROSEMIDE
     Indication: Product used for unknown indication
     Dosage: 5 MILLIGRAM, QH
     Dates: start: 20191227, end: 20191229
  5. DESCOVY [Concomitant]
     Active Substance: EMTRICITABINE\TENOFOVIR ALAFENAMIDE FUMARATE
     Dosage: UNK
  6. LEVETIRACETAM [Concomitant]
     Active Substance: LEVETIRACETAM
     Dosage: UNK
  7. NYSTATIN [Concomitant]
     Active Substance: NYSTATIN
     Dosage: UNK
  8. PREDNISONE [Concomitant]
     Active Substance: PREDNISONE
     Dosage: UNK
  9. ISENTRESS [Concomitant]
     Active Substance: RALTEGRAVIR POTASSIUM
     Dosage: UNK
  10. VITAMIN B12                        /00056201/ [Concomitant]
     Dosage: UNK

REACTIONS (3)
  - Electrocardiogram QT prolonged [Unknown]
  - Hypokalaemia [Recovered/Resolved]
  - Drug interaction [Recovered/Resolved]

NARRATIVE: CASE EVENT DATE: 20191227
